FAERS Safety Report 19002334 (Version 2)
Quarter: 2021Q2

REPORT INFORMATION
  Report Type: Spontaneous
  Country: TH (occurrence: TH)
  Receive Date: 20210312
  Receipt Date: 20210506
  Transmission Date: 20210717
  Serious: Yes (Other)
  Sender: FDA-Public Use
  Company Number: TH-PFIZER INC-2021216302

PATIENT
  Age: 45 Year
  Sex: Female
  Weight: 63 kg

DRUGS (6)
  1. CARBOPLATIN. [Suspect]
     Active Substance: CARBOPLATIN
     Dosage: 5 AUC
     Route: 042
     Dates: start: 20190315
  2. PACLITAXEL. [Suspect]
     Active Substance: PACLITAXEL
     Dosage: DEESCALATING DOSES 20% AT 3RD AND 5TH CYCLE
  3. CARBOPLATIN. [Suspect]
     Active Substance: CARBOPLATIN
     Dosage: DEESCALATING DOSES 20% AT 3RD AND 5TH CYCLE
  4. PACLITAXEL. [Suspect]
     Active Substance: PACLITAXEL
     Indication: ENDOMETRIAL CANCER STAGE III
     Dosage: 175 MG/M2,WITH 28?DAYS INTERVALS BETWEEN MARCH 2018 AND JULY 2018
     Dates: start: 201803, end: 201807
  5. CARBOPLATIN. [Suspect]
     Active Substance: CARBOPLATIN
     Indication: ENDOMETRIAL CANCER STAGE III
     Dosage: UNK AUC 5
     Dates: start: 201803, end: 201807
  6. PACLITAXEL. [Suspect]
     Active Substance: PACLITAXEL
     Dosage: 175 MG/M2, CYCLIC (2 CYCLES )
     Route: 042
     Dates: start: 20190315

REACTIONS (2)
  - Myelosuppression [Recovered/Resolved]
  - Off label use [Unknown]

NARRATIVE: CASE EVENT DATE: 201803
